FAERS Safety Report 5729419-3 (Version None)
Quarter: 2008Q2

REPORT INFORMATION
  Report Type: 
  Country: None (occurrence: None)
  Receive Date: 20080506
  Receipt Date: 20080430
  Transmission Date: 20081010
  Serious: Yes (Death)
  Sender: FDA-Public Use
  Company Number: FR-SANOFI-SYNTHELABO-A01200804646

PATIENT

DRUGS (2)
  1. PLAVIX [Suspect]
     Indication: ANGIOPLASTY
     Dosage: AT LEAST 300 MG DAILY
     Route: 048
     Dates: start: 20080418
  2. PLAVIX [Suspect]
     Indication: STENT PLACEMENT
     Dosage: AT LEAST 300 MG DAILY
     Route: 048
     Dates: start: 20080418

REACTIONS (2)
  - DRUG INEFFECTIVE [None]
  - THROMBOSIS [None]
